FAERS Safety Report 5120875-0 (Version None)
Quarter: 2006Q4

REPORT INFORMATION
  Report Type: 
  Country: None (occurrence: None)
  Receive Date: 20061005
  Receipt Date: 20060925
  Transmission Date: 20070319
  Serious: Yes (Hospitalization)
  Sender: FDA-Public Use
  Company Number: FR-BAYER-200610882BFR

PATIENT
  Age: 65 Year
  Sex: Female

DRUGS (1)
  1. CIFLOX [Suspect]
     Indication: URINARY TRACT INFECTION
     Dosage: TOTAL DAILY DOSE: 1000 MG  UNIT DOSE: 500 MG
     Route: 048
     Dates: start: 20060822, end: 20060824

REACTIONS (2)
  - GRAND MAL CONVULSION [None]
  - SOMNOLENCE [None]
